FAERS Safety Report 7725667-1 (Version None)
Quarter: 2011Q3

REPORT INFORMATION
  Report Type: 
  Country: None (occurrence: None)
  Receive Date: 20110902
  Receipt Date: 20110819
  Transmission Date: 20111222
  Serious: Yes (Other)
  Sender: FDA-Public Use
  Company Number: PHFR2011IE04560

PATIENT
  Sex: Male
  Weight: 84 kg

DRUGS (8)
  1. ZOPICLONE [Concomitant]
     Indication: HYPNOTHERAPY
     Dosage: 7 MG, UNK
     Route: 048
     Dates: start: 20110624
  2. CHLOROPYRAMINE [Concomitant]
     Indication: PSYCHOTIC DISORDER
     Dosage: 100 MG, BID
     Route: 048
     Dates: start: 20110728, end: 20110801
  3. CLOZAPINE [Suspect]
     Indication: SCHIZOPHRENIA
     Dosage: 12.5 MG, QD
     Route: 065
     Dates: start: 20110720
  4. ATIVAN [Concomitant]
     Indication: AGITATION
     Dosage: 2 MG, TID
     Route: 048
     Dates: start: 20110624
  5. CLOZAPINE [Suspect]
     Dosage: 25 MG, QD
     Route: 048
     Dates: end: 20110804
  6. OLANZAPINE [Concomitant]
     Indication: AGITATION
     Dosage: 1 MG, UNK
     Dates: start: 20110801, end: 20110815
  7. HALOPERIDOL [Concomitant]
     Indication: AGITATION
     Dosage: 5 MG, TID
     Dates: start: 20110603, end: 20110624
  8. METOPROLOL [Concomitant]
     Indication: TACHYCARDIA
     Dosage: 25 MG, UNK
     Route: 048
     Dates: start: 20110729, end: 20110811

REACTIONS (6)
  - HYPERTENSION [None]
  - TREMOR [None]
  - AGITATION [None]
  - TACHYCARDIA [None]
  - MALAISE [None]
  - CELLULITIS [None]
